FAERS Safety Report 9973397 (Version 2)
Quarter: 2014Q1

REPORT INFORMATION
  Report Type: Spontaneous
  Country: ES (occurrence: ES)
  Receive Date: 20140306
  Receipt Date: 20140319
  Transmission Date: 20141002
  Serious: Yes (Hospitalization, Disabling)
  Sender: FDA-Public Use
  Company Number: ES-SA-2014SA026475

PATIENT
  Age: 50 Year
  Sex: Female

DRUGS (1)
  1. CEREZYME [Suspect]
     Indication: GAUCHER^S DISEASE
     Dosage: DOSE:30 UNIT(S)/KILOGRAM BODYWEIGHT
     Route: 042

REACTIONS (1)
  - Deafness [Recovering/Resolving]
